FAERS Safety Report 9643522 (Version 2)
Quarter: 2013Q4

REPORT INFORMATION
  Report Type: Spontaneous
  Country: DE (occurrence: DE)
  Receive Date: 20131024
  Receipt Date: 20131112
  Transmission Date: 20140711
  Serious: Yes (Hospitalization)
  Sender: FDA-Public Use
  Company Number: DE-PFIZER INC-2013298856

PATIENT
  Age: 62 Year
  Sex: Male

DRUGS (23)
  1. INLYTA [Suspect]
     Indication: METASTATIC RENAL CELL CARCINOMA
     Dosage: 5 MG, 1X/DAY
     Route: 048
     Dates: start: 20130226, end: 20131002
  2. FURORESE 30MG LONG [Concomitant]
     Dosage: 30 MG, 1X/DAY (1-0-0-0)
  3. PANTOPRAZOL HENNIG 40MG [Concomitant]
     Dosage: 40 MG, 2X/DAY (1-0-1-0)
  4. FORMOTEROL 12UG\DOS 120HUB HEXAL [Concomitant]
     Dosage: 12 UG\DOS, 2X/DAY (1HUB-0-1HUB-0)
  5. SALBUTAMOL ^STADA^ N 200ED [Concomitant]
     Dosage: (0-2-0-0)
  6. FOSTER 100/6 [Concomitant]
     Dosage: 100\6UG (1HUB-0-1HUB-0)
  7. SPIRIVA ^BOEHRINGER INGELHEIM^ [Concomitant]
     Dosage: 2.5 UG, (2HUB-0-0-0)
  8. HYDROMORPHONE [Concomitant]
     Dosage: 24 MG, (1-0-1/2-0)
  9. SEVREDOL [Concomitant]
     Indication: PAIN
     Dosage: 20 (UNIT UNKNOWN) BY PAIN INJECTION 1, MAX. 3X1
  10. LAXANS ^RATIOPHARM^ 7.5MG/ML [Concomitant]
     Dosage: 7.5 MG/ML, EVERY 3.EVENING 50 DROPS
  11. OBSTINOL MILD [Concomitant]
     Dosage: 15 ML, 1X/DAY (1-0-0-0)
  12. LAXANS ^RATIOPHARM^ [Concomitant]
     Indication: CONSTIPATION
     Dosage: 10 MG SUPPOSITORY
  13. FOLIC ACID [Concomitant]
     Dosage: 5 MG, 1X/DAY (1-0-0-0)
  14. ASS-RATIOPHARM 100MG TAH [Concomitant]
     Dosage: 100 MG, 1X/DAY (0-1-0-0)
  15. BISOPROLOL-CORAX [Concomitant]
     Dosage: 10 MG, (1/2-0-0-0)
  16. RAMIPRIL AL [Concomitant]
     Dosage: 10 MG, 1X/DAY (1-0-0-0)
  17. MCP ^RATIOPHARM^ [Concomitant]
     Dosage: 4MG\ML DROPS 30 GTT, 3X/DAY (30GTT-30GTT-30GTT-0)
  18. MIRTAZAPIN 1A PHARMA [Concomitant]
     Dosage: 30 MG, (0-0-1/2-0)
  19. NOVAMINSULFON-RATIOPHARM 500MG\ML [Concomitant]
     Dosage: 30 GTT, 4X/DAY
  20. AMITRIPTYLINE-DURA [Concomitant]
     Dosage: 25 MG, 1X/DAY (0-0-1-0)
  21. TADIN [Concomitant]
     Dosage: 0.4 MG, 1X/DAY (1-0-0-0)
  22. TOLPERISONE HYDROCHLORIDE [Concomitant]
     Indication: MUSCLE TIGHTNESS
     Dosage: 150 MG, AS NEEDED 2X/DAY (1-0-1-0)
  23. TORASEMIDE [Concomitant]
     Dosage: 2X IN THE MORNING

REACTIONS (1)
  - Confusional state [Recovered/Resolved]
